FAERS Safety Report 9934598 (Version 2)
Quarter: 2014Q1

REPORT INFORMATION
  Report Type: Spontaneous
  Country: BR (occurrence: BR)
  Receive Date: 20140228
  Receipt Date: 20140328
  Transmission Date: 20141002
  Serious: Yes (Disabling, Other)
  Sender: FDA-Public Use
  Company Number: BR-ABBVIE-14P-020-1204930-00

PATIENT
  Age: 51 Year
  Sex: Male
  Weight: 84 kg

DRUGS (10)
  1. HUMIRA [Suspect]
     Indication: RHEUMATOID ARTHRITIS
     Route: 058
     Dates: start: 2012, end: 20140213
  2. HUMIRA [Suspect]
     Route: 058
     Dates: start: 20140315
  3. SELOZOK [Suspect]
     Indication: PRODUCT USED FOR UNKNOWN INDICATION
  4. OXYMETAZOLINE HYDROCHLORIDE [Concomitant]
     Indication: UNEVALUABLE EVENT
     Dosage: IN EACH NOSE
  5. OXYMETAZOLINE HYDROCHLORIDE [Concomitant]
     Indication: DYSPNOEA
  6. METHOTREXATE [Concomitant]
     Indication: PRODUCT USED FOR UNKNOWN INDICATION
  7. PREDNISONE [Concomitant]
     Indication: PRODUCT USED FOR UNKNOWN INDICATION
  8. FOLIC ACID [Concomitant]
     Indication: PRODUCT USED FOR UNKNOWN INDICATION
  9. VITAMIN C [Concomitant]
     Indication: PRODUCT USED FOR UNKNOWN INDICATION
  10. B COMPLEX [Concomitant]
     Indication: PRODUCT USED FOR UNKNOWN INDICATION

REACTIONS (14)
  - Blindness [Recovered/Resolved]
  - Blindness [Recovered/Resolved]
  - Blindness [Not Recovered/Not Resolved]
  - Arrhythmia [Recovered/Resolved]
  - Tachycardia [Recovered/Resolved]
  - Mydriasis [Recovered/Resolved]
  - Vision blurred [Recovered/Resolved]
  - Dizziness [Recovering/Resolving]
  - Dizziness [Recovered/Resolved]
  - Dizziness [Recovered/Resolved]
  - Heart rate increased [Recovering/Resolving]
  - Pain [Recovered/Resolved]
  - Dyspnoea [Recovering/Resolving]
  - Tachycardia [Recovered/Resolved]
